FAERS Safety Report 8245293-8 (Version None)
Quarter: 2012Q1

REPORT INFORMATION
  Report Type: 
  Country: None (occurrence: None)
  Receive Date: 20120329
  Receipt Date: 20120316
  Transmission Date: 20120608
  Serious: Yes (Hospitalization)
  Sender: FDA-Public Use
  Company Number: DE-MYLANLABS-2012S1002482

PATIENT
  Age: 68 Year
  Sex: Male
  Weight: 77 kg

DRUGS (1)
  1. AZATHIOPRINE [Suspect]
     Indication: PULMONARY FIBROSIS
     Dosage: 1-2 TABLETS PER DAY
     Route: 048
     Dates: start: 20100101

REACTIONS (1)
  - EPISTAXIS [None]
